FAERS Safety Report 9353674 (Version 1)
Quarter: 2013Q2

REPORT INFORMATION
  Report Type: Spontaneous
  Country: US (occurrence: None)
  Receive Date: 20130612
  Receipt Date: 20130612
  Transmission Date: 20140414
  Serious: Yes (Life-Threatening)
  Sender: FDA-Public Use
  Company Number: 1749482

PATIENT
  Age: 20 Year
  Sex: Female

DRUGS (2)
  1. AZITHROMYCIN [Suspect]
     Indication: PNEUMONIA
     Route: 040
     Dates: start: 20110911, end: 20110911
  2. ONDANSETRON [Suspect]
     Indication: NAUSEA
     Route: 042
     Dates: start: 20110910, end: 20110910

REACTIONS (17)
  - Cardiac arrest [None]
  - Ventricular arrhythmia [None]
  - Electrocardiogram QT prolonged [None]
  - Vomiting [None]
  - Diarrhoea [None]
  - Lethargy [None]
  - Arthralgia [None]
  - Oropharyngeal pain [None]
  - Ear discomfort [None]
  - Blood sodium decreased [None]
  - Bradycardia [None]
  - Hypotension [None]
  - Shock [None]
  - Pulseless electrical activity [None]
  - Brain injury [None]
  - Hypoxic-ischaemic encephalopathy [None]
  - Ischaemic hepatitis [None]
